FAERS Safety Report 14913439 (Version 1)
Quarter: 2018Q2

REPORT INFORMATION
  Report Type: Spontaneous
  Country: US (occurrence: US)
  Receive Date: 20180518
  Receipt Date: 20180518
  Transmission Date: 20180711
  Serious: No
  Sender: FDA-Public Use
  Company Number: US-MYLANLABS-2018M1031345

PATIENT
  Age: 73 Year
  Sex: Male
  Weight: 84 kg

DRUGS (2)
  1. INDOMETHACIN CAPSULES, USP [Suspect]
     Active Substance: INDOMETHACIN
     Indication: PHLEBITIS
     Dosage: UNK UNK, TID
     Route: 048
     Dates: start: 20180503
  2. INDOMETHACIN CAPSULES, USP [Suspect]
     Active Substance: INDOMETHACIN
     Indication: VASCULAR PAIN

REACTIONS (3)
  - Product use in unapproved indication [Recovered/Resolved]
  - Wrong technique in product usage process [Recovered/Resolved]
  - No adverse event [Unknown]

NARRATIVE: CASE EVENT DATE: 20180503
